FAERS Safety Report 18891365 (Version 1)
Quarter: 2021Q1

REPORT INFORMATION
  Report Type: Spontaneous
  Country: CN (occurrence: CN)
  Receive Date: 20210215
  Receipt Date: 20210215
  Transmission Date: 20210420
  Serious: Yes (Other)
  Sender: FDA-Public Use
  Company Number: CN-ROCHE-2763880

PATIENT
  Age: 45 Year
  Sex: Male

DRUGS (2)
  1. AVASTIN [Suspect]
     Active Substance: BEVACIZUMAB
     Indication: HEPATIC CANCER RECURRENT
     Dosage: INTRAVENOUS INJECTION
     Route: 042
     Dates: start: 20190221
  2. TECENTRIQ [Suspect]
     Active Substance: ATEZOLIZUMAB
     Indication: HEPATIC CANCER RECURRENT
     Route: 042
     Dates: start: 20190221

REACTIONS (9)
  - Hypertension [Unknown]
  - Proteinuria [Unknown]
  - Pruritus [Unknown]
  - Off label use [Unknown]
  - Intentional product use issue [Unknown]
  - Arthralgia [Unknown]
  - Rash [Unknown]
  - Platelet count decreased [Unknown]
  - Hepatic enzyme increased [Unknown]
